FAERS Safety Report 7817272-3 (Version None)
Quarter: 2011Q4

REPORT INFORMATION
  Report Type: 
  Country: None (occurrence: None)
  Receive Date: 20111017
  Receipt Date: 20111007
  Transmission Date: 20120403
  Serious: Yes (Other)
  Sender: FDA-Public Use
  Company Number: US-US-EMD SERONO, INC.-7086759

PATIENT
  Sex: Female

DRUGS (2)
  1. ANALGESIC [Concomitant]
  2. REBIF [Suspect]
     Indication: MULTIPLE SCLEROSIS
     Route: 058
     Dates: start: 20100224

REACTIONS (2)
  - INJECTION SITE ERYTHEMA [None]
  - BASEDOW'S DISEASE [None]
